FAERS Safety Report 12248707 (Version 2)
Quarter: 2016Q2

REPORT INFORMATION
  Report Type: Other
  Country: US (occurrence: US)
  Receive Date: 20160408
  Receipt Date: 20160418
  Transmission Date: 20160815
  Serious: No
  Sender: FDA-Public Use
  Company Number: US-ACORDA-ACO_122940_2016

PATIENT
  Sex: Male

DRUGS (1)
  1. AMPYRA [Suspect]
     Active Substance: DALFAMPRIDINE
     Indication: PRODUCT USED FOR UNKNOWN INDICATION
     Dosage: 10 MG, Q 12 HRS
     Route: 065
     Dates: start: 20151008

REACTIONS (3)
  - Asthenia [Unknown]
  - Nasopharyngitis [Unknown]
  - Fatigue [Unknown]
